FAERS Safety Report 8729840 (Version 2)
Quarter: 2012Q4

REPORT INFORMATION
  Report Type: 
  Country: CA (occurrence: CA)
  Receive Date: 20120817
  Receipt Date: 20120829
  Transmission Date: 20130627
  Serious: No
  Sender: FDA-Public Use
  Company Number: CA-ELI_LILLY_AND_COMPANY-CA201208003403

PATIENT
  Age: 71 Year
  Sex: Female

DRUGS (8)
  1. FORTEO [Suspect]
     Indication: OSTEOPOROSIS
     Dosage: 20 ug, qd
     Route: 058
     Dates: start: 20110804
  2. AMITRIPTYLINE [Concomitant]
  3. HYDROXYZINE [Concomitant]
  4. HYDROCHLOROTHIAZIDE [Concomitant]
  5. NORVASC [Concomitant]
     Dosage: 10 mg, UNK
  6. ATACAND [Concomitant]
     Dosage: 32 mg, UNK
  7. AMCINONIDE [Concomitant]
  8. VITAMIN D3 [Concomitant]
     Dosage: 2000 IU, qd

REACTIONS (1)
  - Weight increased [Not Recovered/Not Resolved]
